FAERS Safety Report 4867516-5 (Version None)
Quarter: 2005Q4

REPORT INFORMATION
  Report Type: 
  Country: None (occurrence: None)
  Receive Date: 20051222
  Receipt Date: 20051115
  Transmission Date: 20060501
  Serious: Yes (Hospitalization)
  Sender: FDA-Public Use
  Company Number: IMP_1931_2005

PATIENT
  Age: 51 Year
  Sex: Female

DRUGS (2)
  1. BUPROPION [Suspect]
     Dosage: 30000 MG ONCE PO
     Route: 048
  2. CLONAZEPAM [Suspect]
     Dosage: 1 MG ONCE PO
     Route: 048

REACTIONS (6)
  - AGITATION [None]
  - BLOOD GLUCOSE INCREASED [None]
  - BLOOD PH INCREASED [None]
  - CARBON DIOXIDE DECREASED [None]
  - CREATINE PHOSPHOKINASE DECREASED [None]
  - DELIRIUM [None]
